FAERS Safety Report 9062899 (Version 1)
Quarter: 2013Q1

REPORT INFORMATION
  Report Type: Report from Study
  Country: US (occurrence: US)
  Receive Date: 20130131
  Receipt Date: 20130131
  Transmission Date: 20140127
  Serious: No
  Sender: FDA-Public Use
  Company Number: US-ABBOTT-12P-163-0988736-00

PATIENT
  Age: 38 Year
  Sex: Female

DRUGS (14)
  1. HUMIRA [Suspect]
     Indication: RHEUMATOID ARTHRITIS
     Route: 058
     Dates: start: 20120913, end: 20120913
  2. ASPIRIN [Concomitant]
     Indication: CEREBROVASCULAR ACCIDENT PROPHYLAXIS
  3. ASPIRIN [Concomitant]
     Indication: ATRIAL SEPTAL DEFECT
  4. ICAR PLUS [Concomitant]
     Indication: ANAEMIA
  5. NEXIUM [Concomitant]
     Indication: GASTRIC DISORDER
  6. SINGULAIR [Concomitant]
     Indication: ASTHMA
  7. ZOCOR [Concomitant]
     Indication: BLOOD CHOLESTEROL
  8. METHOTREXATE [Concomitant]
     Indication: RHEUMATOID ARTHRITIS
     Dosage: 7 TABS WEEKLY
  9. METHOTREXATE [Concomitant]
     Indication: PSORIASIS
     Dosage: 8 TABLETS WEEKLY
     Dates: start: 20121119
  10. FOLIC ACID [Concomitant]
     Indication: MOUTH ULCERATION
  11. VITAMIN D [Concomitant]
     Indication: PRODUCT USED FOR UNKNOWN INDICATION
  12. TRILEPTAL [Concomitant]
     Indication: CONVULSION
  13. PATENT FORAMEN OVALE [Concomitant]
     Indication: PRODUCT USED FOR UNKNOWN INDICATION
  14. SIMVASTATIN [Concomitant]
     Indication: BLOOD CHOLESTEROL
     Dosage: 1/2 TABLET DAILY

REACTIONS (8)
  - Blister [Not Recovered/Not Resolved]
  - Skin warm [Not Recovered/Not Resolved]
  - Erythema [Not Recovered/Not Resolved]
  - Local swelling [Recovering/Resolving]
  - Cellulitis [Recovering/Resolving]
  - Pustular psoriasis [Not Recovered/Not Resolved]
  - Dermatitis allergic [Recovered/Resolved]
  - Dermatitis allergic [Unknown]
